FAERS Safety Report 21568002 (Version 1)
Quarter: 2022Q4

REPORT INFORMATION
  Report Type: Spontaneous
  Country: US (occurrence: None)
  Receive Date: 20221108
  Receipt Date: 20221108
  Transmission Date: 20230113
  Serious: Yes (Other)
  Sender: FDA-Public Use
  Company Number: 2022A363253

PATIENT
  Age: 79 Year
  Sex: Female
  Weight: 68.9 kg

DRUGS (1)
  1. BRILINTA [Suspect]
     Active Substance: TICAGRELOR
     Indication: Myocardial infarction
     Dosage: ONE IN THE MORNING AND ONE AT NIGHT
     Route: 048
     Dates: start: 20220716

REACTIONS (4)
  - Suicidal ideation [Recovering/Resolving]
  - Dyspnoea [Not Recovered/Not Resolved]
  - Amnesia [Recovering/Resolving]
  - Weight decreased [Recovering/Resolving]

NARRATIVE: CASE EVENT DATE: 20220701
